FAERS Safety Report 10926371 (Version 1)
Quarter: 2015Q1

REPORT INFORMATION
  Report Type: Spontaneous
  Country: US (occurrence: None)
  Receive Date: 20150317
  Receipt Date: 20150317
  Transmission Date: 20150721
  Serious: No
  Sender: FDA-Public Use
  Company Number: None

PATIENT
  Age: 49 Year
  Sex: Male
  Weight: 87.09 kg

DRUGS (5)
  1. LISINIOPRIL [Concomitant]
  2. VITAMIN D [Concomitant]
     Active Substance: CHOLECALCIFEROL
  3. MELOXICAM 15 MG BOEHRINGER INGELHEIM PHARMACEUTICALS [Suspect]
     Active Substance: MELOXICAM
     Indication: GUN SHOT WOUND
     Dosage: TAKEN BY MOUTH
     Dates: start: 20130604, end: 20130604
  4. MELOXICAM 15 MG BOEHRINGER INGELHEIM PHARMACEUTICALS [Suspect]
     Active Substance: MELOXICAM
     Indication: PAIN
     Dosage: TAKEN BY MOUTH
     Dates: start: 20130604, end: 20130604
  5. ASPIRIN. [Concomitant]
     Active Substance: ASPIRIN

REACTIONS (1)
  - Myocardial infarction [None]

NARRATIVE: CASE EVENT DATE: 20130329
